FAERS Safety Report 4365294-X (Version None)
Quarter: 2004Q2

REPORT INFORMATION
  Report Type: 
  Country: None (occurrence: None)
  Receive Date: 20040521
  Receipt Date: 20040506
  Transmission Date: 20050107
  Serious: Yes (Hospitalization)
  Sender: FDA-Public Use
  Company Number: 2004-DE-02636GD

PATIENT
  Age: 57 Year
  Sex: Female

DRUGS (1)
  1. MELOXICAM (MELOXICAM) (TA) [Suspect]
     Indication: ARTHRALGIA
     Dosage: 15 MG (7.5 MG)
     Route: 048

REACTIONS (6)
  - CONJUNCTIVAL HAEMORRHAGE [None]
  - GASTROINTESTINAL HAEMORRHAGE [None]
  - HAEMOGLOBIN DECREASED [None]
  - MOUTH HAEMORRHAGE [None]
  - THROMBOCYTOPENIC PURPURA [None]
  - WHITE BLOOD CELL COUNT INCREASED [None]
